FAERS Safety Report 25698445 (Version 1)
Quarter: 2025Q3

REPORT INFORMATION
  Report Type: Spontaneous
  Country: US (occurrence: US)
  Receive Date: 20250819
  Receipt Date: 20250819
  Transmission Date: 20251020
  Serious: No
  Sender: LIVZON PHARMA
  Company Number: US-LIVZON-2025MPSPO00252

PATIENT
  Sex: Female

DRUGS (1)
  1. CETRORELIX ACETATE [Suspect]
     Active Substance: CETRORELIX ACETATE
     Indication: Product used for unknown indication
     Route: 065

REACTIONS (2)
  - Accidental exposure to product [Unknown]
  - Device breakage [Unknown]

NARRATIVE: CASE EVENT DATE: 20250613
